FAERS Safety Report 9994842 (Version 1)
Quarter: 2014Q1

REPORT INFORMATION
  Report Type: Spontaneous
  Country: US (occurrence: None)
  Receive Date: 20140219
  Receipt Date: 20140219
  Transmission Date: 20141002
  Serious: Yes (Hospitalization)
  Sender: FDA-Public Use
  Company Number: 1000053007

PATIENT
  Sex: Female

DRUGS (3)
  1. FETZIMA [Suspect]
  2. KLONOPIN [Suspect]
  3. CYMBALTA [Concomitant]

REACTIONS (1)
  - Overdose [None]
